FAERS Safety Report 24077812 (Version 1)
Quarter: 2024Q3

REPORT INFORMATION
  Report Type: Spontaneous
  Country: US (occurrence: US)
  Receive Date: 20240711
  Receipt Date: 20240711
  Transmission Date: 20241017
  Serious: Yes (Other)
  Sender: AUROBINDO
  Company Number: US-AUROBINDO-AUR-APL-2024-033669

PATIENT
  Age: 19 Year
  Sex: Female

DRUGS (4)
  1. METHYLPREDNISOLONE [Suspect]
     Active Substance: METHYLPREDNISOLONE
     Indication: Antiphospholipid syndrome
     Dosage: HIGH DOSE
     Route: 065
  2. HEPARIN [Suspect]
     Active Substance: HEPARIN SODIUM
     Indication: Antiphospholipid syndrome
     Dosage: UNK
     Route: 041
  3. HUMAN IMMUNOGLOBULIN G [Suspect]
     Active Substance: HUMAN IMMUNOGLOBULIN G
     Indication: Antiphospholipid syndrome
     Dosage: UNK
     Route: 042
  4. ELIQUIS [Concomitant]
     Active Substance: APIXABAN
     Indication: Pulmonary embolism
     Dosage: UNK
     Route: 065

REACTIONS (1)
  - Drug ineffective [Unknown]
